FAERS Safety Report 9807776 (Version 1)
Quarter: 2014Q1

REPORT INFORMATION
  Report Type: Spontaneous
  Country: US (occurrence: US)
  Receive Date: 20140110
  Receipt Date: 20140110
  Transmission Date: 20141002
  Serious: Yes (Death)
  Sender: FDA-Public Use
  Company Number: US-BAYER-2014-002007

PATIENT
  Age: 59 Year
  Sex: Female

DRUGS (3)
  1. NAPROXEN SODIUM ({= 220 MG) [Suspect]
  2. ACETAMINOPHEN [Suspect]
  3. HYDROCODONE [Suspect]

REACTIONS (1)
  - Intentional drug misuse [Fatal]
